FAERS Safety Report 7414458-7 (Version None)
Quarter: 2011Q2

REPORT INFORMATION
  Report Type: 
  Country: None (occurrence: None)
  Receive Date: 20110411
  Receipt Date: 20110411
  Transmission Date: 20111010
  Serious: No
  Sender: FDA-Public Use
  Company Number: None

PATIENT
  Age: 64 Year
  Sex: Female
  Weight: 72.5755 kg

DRUGS (1)
  1. CLARITHROMYCIN [Suspect]
     Indication: SINUSITIS
     Dosage: 1 500 MG TABLET TWICE PER DAY PO
     Route: 048
     Dates: start: 20110328, end: 20110406

REACTIONS (2)
  - ANOSMIA [None]
  - AGEUSIA [None]
